FAERS Safety Report 10022946 (Version 1)
Quarter: 2014Q1

REPORT INFORMATION
  Report Type: Spontaneous
  Country: US (occurrence: US)
  Receive Date: 20140319
  Receipt Date: 20140319
  Transmission Date: 20141002
  Serious: No
  Sender: FDA-Public Use
  Company Number: US-SA-2014SA019427

PATIENT
  Age: 74 Year
  Sex: Female

DRUGS (1)
  1. NASACORT ALLERGY [Suspect]
     Indication: MULTIPLE ALLERGIES
     Dosage: TAKEN FROM:ABOUT 5-10 YEARS?AGO
     Route: 065

REACTIONS (2)
  - Sinus headache [Recovered/Resolved]
  - Drug ineffective [Unknown]
